FAERS Safety Report 5967451-5 (Version None)
Quarter: 2008Q4

REPORT INFORMATION
  Report Type: 
  Country: None (occurrence: None)
  Receive Date: 20081125
  Receipt Date: 20081118
  Transmission Date: 20090506
  Serious: Yes (Hospitalization, Other)
  Sender: FDA-Public Use
  Company Number: CA-AMGEN-KDL265990

PATIENT
  Sex: Female
  Weight: 73.1 kg

DRUGS (10)
  1. KINERET [Suspect]
     Indication: JUVENILE ARTHRITIS
     Route: 058
     Dates: start: 20030910
  2. METHOTREXATE [Concomitant]
     Dates: start: 20050404, end: 20070409
  3. CORTISONE ACETATE TAB [Concomitant]
     Dates: start: 20020101, end: 20050314
  4. PLAQUENIL [Concomitant]
     Dates: start: 20030101, end: 20080221
  5. VITAMIN D [Concomitant]
     Route: 048
     Dates: start: 20020101
  6. CALCIUM [Concomitant]
     Route: 048
     Dates: start: 20020101
  7. FOLIC ACID [Concomitant]
     Route: 048
     Dates: start: 20070901
  8. SYNTHROID [Concomitant]
     Route: 048
  9. UNSPECIFIED ANTIEMETIC [Concomitant]
     Dates: start: 20080305, end: 20080405
  10. VITAMIN TAB [Concomitant]

REACTIONS (8)
  - ABORTION SPONTANEOUS [None]
  - ARRESTED LABOUR [None]
  - ARTHRITIS [None]
  - BRONCHITIS [None]
  - ECTOPIC PREGNANCY [None]
  - GESTATIONAL DIABETES [None]
  - LYMPHADENOPATHY [None]
  - NEPHROLITHIASIS [None]
